FAERS Safety Report 9663290 (Version 1)
Quarter: 2013Q4

REPORT INFORMATION
  Report Type: Spontaneous
  Country: US (occurrence: US)
  Receive Date: 20131101
  Receipt Date: 20131101
  Transmission Date: 20140711
  Serious: No
  Sender: FDA-Public Use
  Company Number: US-B.I. PHARMACEUTICALS,INC./RIDGEFIELD-2013-BI-33786BP

PATIENT
  Age: 88 Year
  Sex: Male
  Weight: 82 kg

DRUGS (3)
  1. PRADAXA [Suspect]
     Indication: CEREBROVASCULAR ACCIDENT PROPHYLAXIS
     Dosage: 300 MG
     Route: 048
     Dates: start: 2012
  2. PRADAXA [Suspect]
     Indication: ATRIAL FIBRILLATION
  3. COMBIVENT [Suspect]
     Indication: CHRONIC OBSTRUCTIVE PULMONARY DISEASE
     Dosage: 18 MCG/103MCG
     Route: 055
     Dates: start: 2012

REACTIONS (1)
  - Malaise [Not Recovered/Not Resolved]
